FAERS Safety Report 5739260-3 (Version None)
Quarter: 2008Q2

REPORT INFORMATION
  Report Type: 
  Country: None (occurrence: None)
  Receive Date: 20080515
  Receipt Date: 20080506
  Transmission Date: 20081010
  Serious: Yes (Death, Life-Threatening)
  Sender: FDA-Public Use
  Company Number: IN-AVENTIS-200814127GDDC

PATIENT
  Age: 60 Year
  Sex: Female
  Weight: 78 kg

DRUGS (4)
  1. LANTUS [Suspect]
     Indication: DIABETES MELLITUS
     Route: 058
     Dates: end: 20080506
  2. UNKNOWN DRUG [Concomitant]
     Route: 048
  3. UNKNOWN DRUG [Concomitant]
     Route: 048
  4. UNKNOWN DRUG [Concomitant]
     Route: 048

REACTIONS (4)
  - ASTHENIA [None]
  - CARDIAC ARREST [None]
  - HEART RATE DECREASED [None]
  - PULMONARY OEDEMA [None]
